FAERS Safety Report 5223638-0 (Version None)
Quarter: 2007Q1

REPORT INFORMATION
  Report Type: 
  Country: None (occurrence: None)
  Receive Date: 20070125
  Receipt Date: 20070109
  Transmission Date: 20070707
  Serious: Yes (Death)
  Sender: FDA-Public Use
  Company Number: 6028889

PATIENT

DRUGS (1)
  1. BISOPROLOL (TABLET) (BISOPROLOL) [Suspect]
     Indication: DRUG USE FOR UNKNOWN INDICATION
     Dosage: ORAL
     Route: 048

REACTIONS (1)
  - HAEMORRHAGE INTRACRANIAL [None]
